FAERS Safety Report 21143940 (Version 1)
Quarter: 2022Q3

REPORT INFORMATION
  Report Type: Report from Study
  Country: US (occurrence: US)
  Receive Date: 20220728
  Receipt Date: 20220728
  Transmission Date: 20221026
  Serious: Yes (Hospitalization)
  Sender: FDA-Public Use
  Company Number: US-Accord-271143

PATIENT
  Sex: Male
  Weight: 138 kg

DRUGS (13)
  1. CLOZAPINE [Suspect]
     Active Substance: CLOZAPINE
     Indication: Schizophrenia
     Dosage: 200 MG IN THE MORNING; 400 MG AT BEDTIME BY MOUTH
  2. AMIODARONE [Concomitant]
     Active Substance: AMIODARONE
  3. DOXAZOSIN [Concomitant]
     Active Substance: DOXAZOSIN MESYLATE
  4. ASPIRIN [Concomitant]
     Active Substance: ASPIRIN
  5. IBUPROFEN [Concomitant]
     Active Substance: IBUPROFEN
  6. TRAMADOL [Concomitant]
     Active Substance: TRAMADOL
     Dosage: AS NEEDED
  7. TYLENOL [Concomitant]
     Active Substance: ACETAMINOPHEN
     Dosage: AS NEEDED
  8. DEPAKOTE [Concomitant]
     Active Substance: DIVALPROEX SODIUM
  9. GABAPENTIN [Concomitant]
     Active Substance: GABAPENTIN
  10. BENZTROPINE [Concomitant]
     Active Substance: BENZTROPINE
  11. KCL [Concomitant]
     Active Substance: POTASSIUM CHLORIDE
  12. LASIX [Concomitant]
     Active Substance: FUROSEMIDE
  13. LEVEMIR [Concomitant]
     Active Substance: INSULIN DETEMIR

REACTIONS (4)
  - Vomiting [Unknown]
  - Respiratory failure [Unknown]
  - Encephalopathy [Unknown]
  - Pneumonia aspiration [Unknown]
